FAERS Safety Report 6031235-2 (Version None)
Quarter: 2009Q1

REPORT INFORMATION
  Report Type: 
  Country: None (occurrence: None)
  Receive Date: 20090108
  Receipt Date: 20090105
  Transmission Date: 20090719
  Serious: Yes (Other)
  Sender: FDA-Public Use
  Company Number: BE-BAYER-200910366GPV

PATIENT
  Age: 63 Year

DRUGS (1)
  1. CIPROFLOXACIN [Suspect]
     Indication: PYELONEPHRITIS ACUTE
     Dosage: UNIT DOSE: 500 MG
     Route: 065

REACTIONS (4)
  - COMPLEX REGIONAL PAIN SYNDROME [None]
  - JOINT DISLOCATION [None]
  - LIGAMENT DISORDER [None]
  - TIBIA FRACTURE [None]
